FAERS Safety Report 10276519 (Version 1)
Quarter: 2014Q3

REPORT INFORMATION
  Report Type: Spontaneous
  Country: FR (occurrence: FR)
  Receive Date: 20140703
  Receipt Date: 20140703
  Transmission Date: 20150326
  Serious: Yes (Hospitalization)
  Sender: FDA-Public Use
  Company Number: FR-SA-2014SA082668

PATIENT
  Age: 93 Year
  Sex: Male

DRUGS (10)
  1. CEFTRIAXONE. [Suspect]
     Active Substance: CEFTRIAXONE
     Indication: PRODUCT USED FOR UNKNOWN INDICATION
     Route: 065
  2. MICARDIS [Interacting]
     Active Substance: TELMISARTAN
     Indication: HYPERTENSION
     Dosage: STRENGTH 40 MG
     Route: 048
  3. STILNOX [Concomitant]
     Active Substance: ZOLPIDEM TARTRATE
     Route: 048
  4. CELESTENE [Concomitant]
     Active Substance: BETAMETHASONE
     Route: 048
  5. PRAXILENE [Concomitant]
     Active Substance: NAFRONYL
     Route: 048
  6. INEXIUM [Concomitant]
     Active Substance: ESOMEPRAZOLE
     Route: 048
  7. INNOVAIR [Concomitant]
     Active Substance: BECLOMETHASONE DIPROPIONATE\FORMOTEROL
     Dosage: SOLUTION FOR INHALATION IN PRESSURIZED FLACON
     Route: 055
  8. LASIX [Interacting]
     Active Substance: FUROSEMIDE
     Indication: HYPERTENSION
     Route: 048
  9. DICODIN [Concomitant]
     Active Substance: DIHYDROCODEINE
     Route: 048
  10. ACETYLCYSTEINE. [Concomitant]
     Active Substance: ACETYLCYSTEINE
     Route: 048

REACTIONS (7)
  - Renal failure acute [Recovered/Resolved]
  - Bronchial injury [Recovered/Resolved]
  - Bronchitis chronic [Recovered/Resolved]
  - Faecaloma [Recovered/Resolved]
  - Malnutrition [Recovered/Resolved]
  - Drug interaction [Unknown]
  - Dehydration [Recovered/Resolved]

NARRATIVE: CASE EVENT DATE: 20140214
